FAERS Safety Report 13698756 (Version 1)
Quarter: 2017Q2

REPORT INFORMATION
  Report Type: Spontaneous
  Country: US (occurrence: US)
  Receive Date: 20170627
  Receipt Date: 20170627
  Transmission Date: 20170830
  Serious: No
  Sender: FDA-Public Use
  Company Number: None

PATIENT
  Age: 2 Month
  Sex: Female
  Weight: 85.5 kg

DRUGS (7)
  1. VALSARTAN. [Concomitant]
     Active Substance: VALSARTAN
  2. FLOVENT [Concomitant]
     Active Substance: FLUTICASONE PROPIONATE
  3. VERAPAMIL [Concomitant]
     Active Substance: VERAPAMIL HYDROCHLORIDE
  4. LEVOTHYROXINE. [Concomitant]
     Active Substance: LEVOTHYROXINE
  5. PEPSID [Concomitant]
  6. PROAIR HFA [Suspect]
     Active Substance: ALBUTEROL SULFATE
     Indication: ASTHMA
     Dosage: ?          OTHER STRENGTH:MG;QUANTITY:200 PUFF(S);?
     Route: 048
  7. LATANAPROST [Concomitant]
     Active Substance: LATANOPROST

REACTIONS (4)
  - Product taste abnormal [None]
  - Product quality issue [None]
  - Dyspnoea [None]
  - Product formulation issue [None]

NARRATIVE: CASE EVENT DATE: 20170626
